FAERS Safety Report 5580823-6 (Version None)
Quarter: 2008Q1

REPORT INFORMATION
  Report Type: 
  Country: None (occurrence: None)
  Receive Date: 20080103
  Receipt Date: 20071210
  Transmission Date: 20080703
  Serious: No
  Sender: FDA-Public Use
  Company Number: US-BOEHRINGER INGELHEIM PHARMACEUTICALS, INC.-2007-BP-25931BP

PATIENT
  Age: 46 Year
  Sex: Male

DRUGS (1)
  1. ALUPENT [Suspect]
     Route: 055
     Dates: start: 19970101

REACTIONS (1)
  - PALPITATIONS [None]
